FAERS Safety Report 6549824-5 (Version None)
Quarter: 2010Q1

REPORT INFORMATION
  Report Type: 
  Country: None (occurrence: None)
  Receive Date: 20100119
  Receipt Date: 20100107
  Transmission Date: 20100710
  Serious: Yes (Hospitalization)
  Sender: FDA-Public Use
  Company Number: 2010AL000106

PATIENT
  Age: 33 Year
  Sex: Female

DRUGS (4)
  1. BUPROPION HCL [Suspect]
     Dosage: 300 MG;QD;
  2. PANTOPRAZOLE [Concomitant]
  3. QUETIAPINE [Concomitant]
  4. DIAZEPAM [Concomitant]

REACTIONS (5)
  - BLOOD CORTISOL INCREASED [None]
  - BLOOD OSMOLARITY DECREASED [None]
  - INAPPROPRIATE ANTIDIURETIC HORMONE SECRETION [None]
  - STRESS [None]
  - URINE OSMOLARITY INCREASED [None]
